FAERS Safety Report 9622618 (Version 1)
Quarter: 2013Q4

REPORT INFORMATION
  Report Type: Spontaneous
  Country: TR (occurrence: TR)
  Receive Date: 20131015
  Receipt Date: 20131015
  Transmission Date: 20140711
  Serious: Yes (Other)
  Sender: FDA-Public Use
  Company Number: PHHY2013TR111503

PATIENT
  Age: 31 Year
  Sex: Female

DRUGS (2)
  1. MONTELUKAST SODIUM [Suspect]
     Indication: ASTHMA
     Dosage: 10 MG, QD
  2. BUDESONIDE [Concomitant]
     Indication: ASTHMA
     Dosage: 200 UG, BID

REACTIONS (3)
  - Ecchymosis [Recovered/Resolved]
  - Skin oedema [Recovered/Resolved]
  - Contusion [Recovered/Resolved]
